FAERS Safety Report 24771755 (Version 1)
Quarter: 2024Q4

REPORT INFORMATION
  Report Type: Spontaneous
  Country: CN (occurrence: CN)
  Receive Date: 20241224
  Receipt Date: 20241224
  Transmission Date: 20250114
  Serious: Yes (Hospitalization, Other)
  Sender: VIIV
  Company Number: CN-VIIV HEALTHCARE-CN2024APC159782

PATIENT

DRUGS (1)
  1. DOLUTEGRAVIR SODIUM\LAMIVUDINE [Suspect]
     Active Substance: DOLUTEGRAVIR SODIUM\LAMIVUDINE
     Indication: Antiviral treatment
     Dosage: 1 DF, QD
     Route: 048
     Dates: start: 20240801, end: 20241028

REACTIONS (5)
  - Drug-induced liver injury [Recovering/Resolving]
  - Gastritis [Recovering/Resolving]
  - Fatigue [Recovering/Resolving]
  - Abdominal distension [Recovering/Resolving]
  - Pain [Recovering/Resolving]

NARRATIVE: CASE EVENT DATE: 20241025
